FAERS Safety Report 8708039 (Version 4)
Quarter: 2013Q1

REPORT INFORMATION
  Report Type: Spontaneous
  Country: JP (occurrence: None)
  Receive Date: 20120719
  Receipt Date: 20121116
  Transmission Date: 20140127
  Serious: Yes (Hospitalization, Other)
  Sender: FDA-Public Use
  Company Number: DSJ-2012-12196

PATIENT
  Age: 74 Year
  Sex: Female
  Weight: 36 kg

DRUGS (2)
  1. OLMESARTAN MEDOXOMIL [Suspect]
     Indication: ESSENTIAL HYPERTENSION
     Dosage: 10 MG, PER ORAL; 2.5 MG, PER ORAL; 5 MG, PER ORAL
     Route: 048
     Dates: start: 20100324, end: 20100811
  2. ZETIA (EZETIMIBE) [Concomitant]

REACTIONS (4)
  - Angina pectoris [None]
  - Hypotension [None]
  - Coronary artery stenosis [None]
  - Myocardial ischaemia [None]
